FAERS Safety Report 22111603 (Version 2)
Quarter: 2023Q1

REPORT INFORMATION
  Report Type: Spontaneous
  Country: CN (occurrence: CN)
  Receive Date: 20230318
  Receipt Date: 20230327
  Transmission Date: 20230418
  Serious: Yes (Life-Threatening, Hospitalization, Other)
  Sender: FDA-Public Use
  Company Number: CN-MACLEODS PHARMACEUTICALS US LTD-MAC2023040286

PATIENT

DRUGS (9)
  1. AMLODIPINE [Suspect]
     Active Substance: AMLODIPINE BESYLATE
     Indication: Hypertension
     Dosage: 5 MILLIGRAM, QD
     Route: 065
  2. BISOPROLOL FUMARATE [Concomitant]
     Active Substance: BISOPROLOL FUMARATE
     Indication: Hypertension
     Dosage: 5 MILLIGRAM, QD
     Route: 065
  3. VECURONIUM [Concomitant]
     Active Substance: VECURONIUM BROMIDE
     Indication: Induction of anaesthesia
     Dosage: 0.6 MILLIGRAM/KILOGRAM
     Route: 065
  4. SUFENTANIL [Concomitant]
     Active Substance: SUFENTANIL
     Indication: Induction of anaesthesia
     Dosage: 1.5 MICROGRAM/KILOGRAM
     Route: 065
  5. REMIFENTANIL [Concomitant]
     Active Substance: REMIFENTANIL
     Indication: Induction of anaesthesia
     Dosage: 0.2 MICROGRAM/KILOGRAM FOR 1 MIN
     Route: 042
  6. REMIFENTANIL [Concomitant]
     Active Substance: REMIFENTANIL
     Dosage: 0.1 MICROGRAM/KILOGRAM FOR 1 MIN
     Route: 042
  7. PROPOFOL [Concomitant]
     Active Substance: PROPOFOL
     Indication: Induction of anaesthesia
     Dosage: 6 MILLIGRAM/KILOGRAM, Q.H.
     Route: 042
  8. PROPOFOL [Concomitant]
     Active Substance: PROPOFOL
     Dosage: 4 MILLIGRAM/KILOGRAM, Q.H.
     Route: 042
  9. PROPOFOL [Concomitant]
     Active Substance: PROPOFOL
     Dosage: 2 MILLIGRAM/KILOGRAM
     Route: 065

REACTIONS (2)
  - Hypoxia [Recovered/Resolved]
  - Bradycardia [Recovered/Resolved]
